FAERS Safety Report 6237377-0 (Version None)
Quarter: 2009Q2

REPORT INFORMATION
  Report Type: 
  Country: None (occurrence: None)
  Receive Date: 20090619
  Receipt Date: 20090615
  Transmission Date: 20091009
  Serious: Yes (Hospitalization)
  Sender: FDA-Public Use
  Company Number: CH-WYE-G03055109

PATIENT
  Age: 64 Year
  Sex: Female

DRUGS (11)
  1. EFFEXOR [Suspect]
     Dosage: STEPWISE INCREASED STARTING FROM 37.5 MG DAILY
     Route: 048
     Dates: start: 20080501, end: 20080517
  2. EFFEXOR [Interacting]
     Route: 048
     Dates: start: 20080518, end: 20080528
  3. EFFEXOR [Interacting]
     Route: 048
     Dates: start: 20080529, end: 20080101
  4. EFFEXOR [Interacting]
     Dosage: DOSE STEPWISE DECREASED STARTING FROM 150 MG DAILY
     Dates: start: 20080101, end: 20080711
  5. NEO-MERCAZOLE TAB [Interacting]
     Indication: TOXIC NODULAR GOITRE
     Route: 048
     Dates: start: 20080301, end: 20080725
  6. NEO-MERCAZOLE TAB [Interacting]
     Route: 048
     Dates: start: 20080726
  7. INDERAL [Interacting]
     Indication: HYPERTENSION
     Route: 048
     Dates: start: 20070101, end: 20080526
  8. INDERAL [Interacting]
     Route: 048
     Dates: start: 20080527
  9. DIPIPERON [Concomitant]
     Route: 048
     Dates: start: 20080501, end: 20080725
  10. SORTIS [Concomitant]
     Indication: DYSLIPIDAEMIA
     Route: 048
     Dates: start: 20060101, end: 20080725
  11. DIOVAN HCT [Concomitant]
     Indication: HYPERTENSION
     Dosage: 80/12.5 MG PER DAY
     Route: 048
     Dates: start: 20070101, end: 20080712

REACTIONS (7)
  - ABDOMINAL PAIN [None]
  - ABDOMINAL PAIN UPPER [None]
  - ANOREXIA [None]
  - CONDITION AGGRAVATED [None]
  - DRUG INTERACTION [None]
  - DYSPEPSIA [None]
  - NAUSEA [None]
